FAERS Safety Report 6369853-4 (Version None)
Quarter: 2009Q3

REPORT INFORMATION
  Report Type: 
  Country: None (occurrence: None)
  Receive Date: 20090923
  Receipt Date: 20070516
  Transmission Date: 20100115
  Serious: No
  Sender: FDA-Public Use
  Company Number: US-ASTRAZENECA-2006UW11113

PATIENT
  Age: 51 Year
  Sex: Female
  Weight: 72.6 kg

DRUGS (14)
  1. SEROQUEL [Suspect]
     Indication: BIPOLAR DISORDER
     Dosage: 50-300 MG (FLUCTUATING)
     Route: 048
     Dates: start: 20000622
  2. SEROQUEL [Suspect]
     Route: 048
     Dates: start: 20010517, end: 20060418
  3. RISPERDAL [Suspect]
  4. ABILIFY [Concomitant]
     Route: 048
     Dates: start: 20040309
  5. CLOZARIL [Concomitant]
  6. GEODON [Concomitant]
  7. CLONAZEPAM [Concomitant]
     Dosage: 0.5 MG AND 1 MG (FLUCTUATING DOSE)
     Route: 048
     Dates: start: 19990831
  8. LITHIUM [Concomitant]
     Dosage: 300 MG AND 450 MG (FLUCTUATING DOSE)
     Route: 048
     Dates: start: 19981214, end: 20040624
  9. WELLBUTRIN [Concomitant]
     Route: 048
     Dates: start: 20000622
  10. PREVACID [Concomitant]
     Route: 048
     Dates: start: 20010303
  11. HYDROCHLOROTHIAZIDE [Concomitant]
     Route: 048
     Dates: start: 20010303
  12. LEVOTHYROXINE SODIUM [Concomitant]
     Dosage: 0.25 MG AND 75 MCG
     Route: 048
     Dates: start: 20000622
  13. LIPITOR [Concomitant]
     Dosage: 10 TO 20 MG (FLUCTUATING DOSE)
     Route: 048
     Dates: start: 20010810
  14. DEPAKOTE [Concomitant]
     Dosage: 150 MG TO 500 MG (FLUCTUATING DOSE)
     Route: 048
     Dates: start: 20000622

REACTIONS (3)
  - DIABETES MELLITUS [None]
  - ILL-DEFINED DISORDER [None]
  - TYPE 2 DIABETES MELLITUS [None]
